FAERS Safety Report 4283463-4 (Version None)
Quarter: 2004Q1

REPORT INFORMATION
  Report Type: 
  Country: None (occurrence: None)
  Receive Date: 20040202
  Receipt Date: 20040129
  Transmission Date: 20041129
  Serious: Yes (Death, Hospitalization)
  Sender: FDA-Public Use
  Company Number: 200411327GDDC

PATIENT
  Age: 57 Year
  Sex: Male
  Weight: 90 kg

DRUGS (12)
  1. CLEXANE [Suspect]
     Indication: ANGINA UNSTABLE
     Route: 058
     Dates: start: 20031007, end: 20031013
  2. PREDNISOLONE [Concomitant]
  3. NICORANDIL [Concomitant]
     Dosage: DOSE: UNK
  4. IMDUR [Concomitant]
     Dosage: DOSE: UNK
  5. BISOPROLOL FUMARATE [Concomitant]
     Dosage: DOSE: UNK
  6. TEGRETOL [Concomitant]
     Dosage: DOSE: UNK
  7. CYCLOSPORINE [Concomitant]
     Dosage: DOSE: UNK
  8. RANITIDINE [Concomitant]
     Dosage: DOSE: UNK
  9. SIMVASTATIN [Concomitant]
     Dosage: DOSE: UNK
  10. AMLODIPINE BESYLATE [Concomitant]
     Dosage: DOSE: UNK
  11. LOSARTAN [Concomitant]
     Dosage: DOSE: UNK
  12. ALLOPURINOL [Concomitant]
     Dosage: DOSE: UNK

REACTIONS (6)
  - BLOOD PRESSURE DECREASED [None]
  - HAEMATOMA [None]
  - MYOCARDIAL INFARCTION [None]
  - PERITONEAL HAEMATOMA [None]
  - RENAL FAILURE CHRONIC [None]
  - RENAL IMPAIRMENT [None]
